FAERS Safety Report 22140483 (Version 1)
Quarter: 2023Q1

REPORT INFORMATION
  Report Type: Spontaneous
  Country: US (occurrence: None)
  Receive Date: 20230327
  Receipt Date: 20230327
  Transmission Date: 20230418
  Serious: Yes (Hospitalization)
  Sender: FDA-Public Use
  Company Number: US-ROCHE-3315299

PATIENT

DRUGS (1)
  1. XOLAIR [Suspect]
     Active Substance: OMALIZUMAB
     Indication: Chronic spontaneous urticaria
     Route: 065
     Dates: start: 2015

REACTIONS (5)
  - Chronic spontaneous urticaria [Unknown]
  - Urticaria [Unknown]
  - Angioedema [Unknown]
  - Asthenia [Unknown]
  - Therapy cessation [Unknown]
